FAERS Safety Report 4594956-4 (Version None)
Quarter: 2005Q1

REPORT INFORMATION
  Report Type: 
  Country: None (occurrence: None)
  Receive Date: 20050224
  Receipt Date: 20040331
  Transmission Date: 20050727
  Serious: Yes (Hospitalization)
  Sender: FDA-Public Use
  Company Number: GXKR2004US00699

PATIENT
  Age: 77 Year
  Sex: Female

DRUGS (1)
  1. ALPRAZOLAM [Suspect]
     Indication: PANIC ATTACK
     Dosage: 0.5 MG, BID, THEN 4-TIMES DAILY

REACTIONS (3)
  - ANXIETY [None]
  - DRUG DEPENDENCE [None]
  - PANIC ATTACK [None]
